FAERS Safety Report 9216957 (Version 1)
Quarter: 2013Q2

REPORT INFORMATION
  Report Type: Spontaneous
  Country: US (occurrence: US)
  Receive Date: 20130408
  Receipt Date: 20130408
  Transmission Date: 20140414
  Serious: No
  Sender: FDA-Public Use
  Company Number: US-GLAXOSMITHKLINE-A1014776A

PATIENT
  Sex: Male

DRUGS (1)
  1. POTIGA [Suspect]

REACTIONS (1)
  - Somnambulism [Recovered/Resolved]
